FAERS Safety Report 13854735 (Version 1)
Quarter: 2017Q3

REPORT INFORMATION
  Report Type: Spontaneous
  Country: CN (occurrence: CN)
  Receive Date: 20170810
  Receipt Date: 20170810
  Transmission Date: 20171127
  Serious: Yes (Other)
  Sender: FDA-Public Use
  Company Number: CN-JNJFOC-20170801035

PATIENT
  Age: 9 Day
  Sex: Male
  Weight: 1.53 kg

DRUGS (1)
  1. TYLENOL [Suspect]
     Active Substance: ACETAMINOPHEN
     Indication: PATENT DUCTUS ARTERIOSUS
     Route: 045
     Dates: start: 20170507, end: 20170510

REACTIONS (4)
  - Product use in unapproved indication [Recovered/Resolved]
  - Abdominal distension [Recovered/Resolved]
  - Incorrect route of drug administration [Recovered/Resolved]
  - Off label use [Recovered/Resolved]

NARRATIVE: CASE EVENT DATE: 20170507
